FAERS Safety Report 17447021 (Version 1)
Quarter: 2020Q1

REPORT INFORMATION
  Report Type: Report from Study
  Country: US (occurrence: US)
  Receive Date: 20200221
  Receipt Date: 20200221
  Transmission Date: 20200409
  Serious: Yes (Death, Hospitalization)
  Sender: FDA-Public Use
  Company Number: US-ACTELION-A-US2019-185518

PATIENT
  Age: 82 Year
  Sex: Female

DRUGS (1)
  1. UPTRAVI [Suspect]
     Active Substance: SELEXIPAG
     Indication: PULMONARY ARTERIAL HYPERTENSION
     Dosage: 600 MCG, BID
     Route: 048
     Dates: start: 20160225

REACTIONS (5)
  - Death [Fatal]
  - Viral infection [Unknown]
  - Malaise [Unknown]
  - Dysphonia [Unknown]
  - Nasal dryness [Unknown]

NARRATIVE: CASE EVENT DATE: 201812
